FAERS Safety Report 13098365 (Version 1)
Quarter: 2017Q1

REPORT INFORMATION
  Report Type: Spontaneous
  Country: PL (occurrence: PL)
  Receive Date: 20170109
  Receipt Date: 20170109
  Transmission Date: 20170428
  Serious: Yes (Other)
  Sender: FDA-Public Use
  Company Number: PL-TEVA-727280ACC

PATIENT
  Age: 64 Year
  Sex: Female

DRUGS (3)
  1. 5 FU [Suspect]
     Active Substance: FLUOROURACIL
     Indication: COLON CANCER
     Dosage: 1245 DOSE UNIT NOT SPECIFIED
     Route: 042
     Dates: start: 20150609, end: 20160608
  2. 5 FU [Suspect]
     Active Substance: FLUOROURACIL
     Indication: COLON CANCER
     Dosage: 830 DOSE UNIT NOT SPECIFIED
     Route: 042
     Dates: start: 20150609, end: 20160608
  3. LEUCOVORIN. [Suspect]
     Active Substance: LEUCOVORIN
     Indication: COLON CANCER
     Dosage: 415  DOSE UNIT NOT SPECIFIED
     Route: 042
     Dates: start: 20150609, end: 20160608

REACTIONS (1)
  - Neutropenia [Unknown]

NARRATIVE: CASE EVENT DATE: 20160628
